FAERS Safety Report 4907419-0 (Version None)
Quarter: 2006Q1

REPORT INFORMATION
  Report Type: 
  Country: None (occurrence: None)
  Receive Date: 20060208
  Receipt Date: 20060208
  Transmission Date: 20060701
  Serious: Yes (Hospitalization)
  Sender: FDA-Public Use
  Company Number: None

PATIENT
  Age: 68 Year
  Sex: Male

DRUGS (6)
  1. WARFARIN [Suspect]
     Indication: CORONARY ARTERY DISEASE
     Dosage: 5 MG QD WITH EXTRA 2.5 MG MONDAY
     Dates: start: 20040801
  2. F6SO4 [Concomitant]
  3. NITROGLYCERIN [Concomitant]
  4. ZOCOR [Concomitant]
  5. CARVEDILOL [Concomitant]
  6. FUROSEMIDE [Concomitant]

REACTIONS (1)
  - INTERNATIONAL NORMALISED RATIO INCREASED [None]
